FAERS Safety Report 9921970 (Version 1)
Quarter: 2014Q1

REPORT INFORMATION
  Report Type: Spontaneous
  Country: US (occurrence: None)
  Receive Date: 20140221
  Receipt Date: 20140221
  Transmission Date: 20141002
  Serious: Yes (Disabling)
  Sender: FDA-Public Use
  Company Number: None

PATIENT
  Age: 65 Year
  Sex: Male
  Weight: 87.54 kg

DRUGS (2)
  1. CIPROFLOXACIN [Suspect]
     Indication: INFECTION
     Route: 048
     Dates: start: 20131125, end: 20131201
  2. CIPROFLOXACIN [Suspect]
     Indication: PROSTATIC SPECIFIC ANTIGEN INCREASED
     Route: 048
     Dates: start: 20131125, end: 20131201

REACTIONS (3)
  - Musculoskeletal stiffness [None]
  - Pain in extremity [None]
  - Arthralgia [None]
